FAERS Safety Report 9695452 (Version 1)
Quarter: 2013Q4

REPORT INFORMATION
  Report Type: Spontaneous
  Country: US (occurrence: None)
  Receive Date: 20131118
  Receipt Date: 20131118
  Transmission Date: 20140711
  Serious: No
  Sender: FDA-Public Use
  Company Number: None

PATIENT
  Age: 35 Year
  Sex: Female
  Weight: 49.9 kg

DRUGS (2)
  1. FLUOXETINE [Suspect]
     Indication: DEPRESSION
     Route: 048
     Dates: start: 20130601, end: 20131113
  2. FLUOXETINE [Suspect]
     Indication: ANXIETY
     Route: 048
     Dates: start: 20130601, end: 20131113

REACTIONS (1)
  - Contusion [None]
